FAERS Safety Report 6613199-3 (Version None)
Quarter: 2010Q1

REPORT INFORMATION
  Report Type: 
  Country: None (occurrence: None)
  Receive Date: 20100304
  Receipt Date: 20100219
  Transmission Date: 20100710
  Serious: Yes (Hospitalization)
  Sender: FDA-Public Use
  Company Number: US-ELI_LILLY_AND_COMPANY-US201002005877

PATIENT
  Sex: Female
  Weight: 87.982 kg

DRUGS (24)
  1. GEMCITABINE HCL [Suspect]
     Indication: DIFFUSE LARGE B-CELL LYMPHOMA
     Dosage: 1200 MG, OTHER
     Route: 042
     Dates: start: 20100125
  2. OTHER PHARMA COMPANY INV DRUG [Suspect]
     Indication: DIFFUSE LARGE B-CELL LYMPHOMA
     Dosage: 30 MG, OTHER
     Route: 042
     Dates: start: 20100125
  3. ACYCLOVIR [Concomitant]
  4. ALBUTEROL [Concomitant]
  5. CREON [Concomitant]
  6. CLONIDINE [Concomitant]
  7. DIGOXIN [Concomitant]
  8. DILTIAZEM HCL [Concomitant]
  9. FENOFIBRATE [Concomitant]
  10. FLUTICASONE [Concomitant]
  11. FOLIC ACID [Concomitant]
  12. FUROSEMIDE [Concomitant]
  13. LORAZEPAM [Concomitant]
  14. METOPROLOL TARTRATE [Concomitant]
  15. NIFEDIPINE [Concomitant]
  16. OMEPRAZOLE [Concomitant]
  17. ONDANSETRON [Concomitant]
  18. K-DUR [Concomitant]
  19. BACTRIM [Concomitant]
  20. DIPHENHYDRAMINE W/PARACETAMOL [Concomitant]
  21. VITAMIN D [Concomitant]
  22. LORATADINE [Concomitant]
  23. MAGNESIUM [Concomitant]
  24. OMEGA-3 FATTY ACIDS [Concomitant]

REACTIONS (3)
  - ORAL CANDIDIASIS [None]
  - OROPHARYNGEAL PAIN [None]
  - THROMBOCYTOPENIA [None]
